FAERS Safety Report 5133283-3 (Version None)
Quarter: 2006Q4

REPORT INFORMATION
  Report Type: 
  Country: None (occurrence: None)
  Receive Date: 20060831
  Receipt Date: 20060717
  Transmission Date: 20070319
  Serious: No
  Sender: FDA-Public Use
  Company Number: 2006-BP-07309BP

PATIENT
  Age: 76 Year
  Sex: Female

DRUGS (14)
  1. SPIRIVA [Suspect]
     Indication: CHRONIC OBSTRUCTIVE PULMONARY DISEASE
     Dosage: 18 MCG (18 MCG,1 IN 1 D),IH
     Dates: start: 20040101
  2. SPIRIVA [Suspect]
     Indication: DYSPNOEA
     Dosage: 18 MCG (18 MCG,1 IN 1 D),IH
     Dates: start: 20040101
  3. LYRICA C [Concomitant]
  4. WARFARIN SODIUM [Concomitant]
  5. SULFASALAZINE [Concomitant]
  6. ALPRAZOLAM [Concomitant]
  7. ZOCOR [Concomitant]
  8. FLUOXETINE [Concomitant]
  9. ISOSORBIDE (ISOSORBIDE) [Concomitant]
  10. ACETAMINOPHEN [Concomitant]
  11. CODEINE # 4 [Concomitant]
  12. PENTOXIFYLLINE [Concomitant]
  13. ALTACE [Concomitant]
  14. FUROSEMIDE [Concomitant]

REACTIONS (1)
  - DYSPNOEA [None]
